FAERS Safety Report 9291510 (Version 1)
Quarter: 2013Q2

REPORT INFORMATION
  Report Type: Spontaneous
  Country: CA (occurrence: CA)
  Receive Date: 20130515
  Receipt Date: 20130515
  Transmission Date: 20140414
  Serious: Yes (Other)
  Sender: FDA-Public Use
  Company Number: CA-009507513-1111USA03469

PATIENT
  Sex: Male
  Weight: 100 kg

DRUGS (9)
  1. SINEMET [Suspect]
     Indication: PARKINSON^S DISEASE
     Dosage: OLD PRESENTATION
     Route: 048
     Dates: start: 2007
  2. SINEMET [Suspect]
     Indication: PARKINSON^S DISEASE
     Dosage: NEW PESENTATION
     Route: 048
     Dates: start: 20111116
  3. APOMORPHINE HYDROCHLORIDE [Suspect]
     Indication: PARKINSON^S DISEASE
  4. MIRAPEX [Concomitant]
     Indication: PARKINSON^S DISEASE
     Dosage: 1 MG, TID
  5. ELAVIL (MADE BY MERCK, MARKETED BY ZENECA) [Concomitant]
  6. TECTA [Concomitant]
     Indication: GASTROOESOPHAGEAL REFLUX DISEASE
     Dosage: 40 MG, QD
  7. DICETEL [Concomitant]
     Dosage: 50 MG, BID
  8. IMOVANE [Concomitant]
     Indication: SLEEP DISORDER
     Dosage: 7.5 MG, HS
  9. NASACORT [Concomitant]
     Indication: RHINITIS ALLERGIC
     Dosage: 2 DF, BID

REACTIONS (9)
  - Blindness unilateral [Unknown]
  - Adverse reaction [Unknown]
  - Dizziness [Unknown]
  - Drug ineffective [Unknown]
  - Salivary hypersecretion [Unknown]
  - Insomnia [Not Recovered/Not Resolved]
  - Mood altered [Not Recovered/Not Resolved]
  - Irritability [Not Recovered/Not Resolved]
  - Drooling [Not Recovered/Not Resolved]
